FAERS Safety Report 6890948-0 (Version None)
Quarter: 2010Q3

REPORT INFORMATION
  Report Type: 
  Country: None (occurrence: None)
  Receive Date: 20100731
  Receipt Date: 20090417
  Transmission Date: 20110219
  Serious: No
  Sender: FDA-Public Use
  Company Number: US-PFIZER INC-2009190520

PATIENT
  Sex: Female
  Weight: 63 kg

DRUGS (6)
  1. LIPITOR [Suspect]
     Indication: BLOOD CHOLESTEROL ABNORMAL
     Dosage: 40 MG/DAY
     Route: 048
     Dates: start: 20090101, end: 20090312
  2. LIPITOR [Interacting]
     Indication: CORONARY ARTERY OCCLUSION
  3. ZITHROMAX [Interacting]
     Dosage: 250 MG/DAY
     Route: 048
     Dates: start: 20090222, end: 20090101
  4. LEVOXYL [Concomitant]
     Dosage: UNK
  5. PLAVIX [Concomitant]
     Dosage: UNK
  6. ACETYLSALICYLIC ACID [Concomitant]
     Dosage: UNK

REACTIONS (4)
  - DRUG INTERACTION [None]
  - MYALGIA [None]
  - PAIN IN EXTREMITY [None]
  - UPPER RESPIRATORY TRACT INFECTION [None]
